FAERS Safety Report 6373236-0 (Version None)
Quarter: 2009Q3

REPORT INFORMATION
  Report Type: 
  Country: None (occurrence: None)
  Receive Date: 20090924
  Receipt Date: 20090114
  Transmission Date: 20100115
  Serious: No
  Sender: FDA-Public Use
  Company Number: US-ASTRAZENECA-2009UW01123

PATIENT
  Age: 80 Year
  Sex: Female
  Weight: 61.2 kg

DRUGS (2)
  1. SEROQUEL [Suspect]
     Indication: DEPRESSION
     Route: 048
     Dates: start: 19990101
  2. THYROID TAB [Concomitant]
     Indication: THYROID DISORDER

REACTIONS (4)
  - ABDOMINAL PAIN UPPER [None]
  - CHILLS [None]
  - HEADACHE [None]
  - ILL-DEFINED DISORDER [None]
